FAERS Safety Report 8097071-0 (Version None)
Quarter: 2012Q1

REPORT INFORMATION
  Report Type: 
  Country: None (occurrence: None)
  Receive Date: 20120126
  Receipt Date: 20120116
  Transmission Date: 20120608
  Serious: Yes (Hospitalization, Other)
  Sender: FDA-Public Use
  Company Number: 2012SP002957

PATIENT
  Sex: Female

DRUGS (2)
  1. PEG-INTRON [Suspect]
     Indication: HEPATITIS C
     Dates: start: 20110107, end: 20110815
  2. RIBAVIRIN [Suspect]
     Indication: HEPATITIS C
     Dates: start: 20110107, end: 20110815

REACTIONS (4)
  - PNEUMONIA [None]
  - SARCOIDOSIS [None]
  - PHARYNGITIS [None]
  - STAPHYLOCOCCAL INFECTION [None]
